FAERS Safety Report 12652020 (Version 1)
Quarter: 2016Q3

REPORT INFORMATION
  Report Type: Other
  Country: CA (occurrence: CA)
  Receive Date: 20160815
  Receipt Date: 20160815
  Transmission Date: 20161109
  Serious: Yes (Disabling)
  Sender: FDA-Public Use
  Company Number: CA-APOTEX-2016AP010341

PATIENT
  Age: 54 Year
  Sex: Male
  Weight: 91 kg

DRUGS (1)
  1. APO-AMLODIPINE [Suspect]
     Active Substance: AMLODIPINE BESYLATE
     Indication: HYPERTENSION
     Dosage: 5 MG, ONCE DAILY
     Route: 048

REACTIONS (5)
  - Dry mouth [Recovering/Resolving]
  - Paraesthesia oral [Recovering/Resolving]
  - Sleep disorder [Recovering/Resolving]
  - Burning sensation [Recovering/Resolving]
  - Hyperhidrosis [Recovering/Resolving]
